FAERS Safety Report 19216473 (Version 1)
Quarter: 2021Q2

REPORT INFORMATION
  Report Type: Spontaneous
  Country: US (occurrence: US)
  Receive Date: 20210504
  Receipt Date: 20210504
  Transmission Date: 20210717
  Serious: Yes (Hospitalization)
  Sender: FDA-Public Use
  Company Number: None

PATIENT
  Age: 27 Year
  Sex: Female

DRUGS (2)
  1. INTRAUTERINE DEVICE [Concomitant]
     Active Substance: INTRAUTERINE DEVICE
  2. KYLEENA [Suspect]
     Active Substance: LEVONORGESTREL
     Dates: start: 20191113, end: 20210504

REACTIONS (2)
  - Pregnancy with contraceptive device [None]
  - Device dislocation [None]

NARRATIVE: CASE EVENT DATE: 20210503
